FAERS Safety Report 5232569-1 (Version None)
Quarter: 2007Q1

REPORT INFORMATION
  Report Type: 
  Country: None (occurrence: None)
  Receive Date: 20070207
  Receipt Date: 20070130
  Transmission Date: 20070707
  Serious: Yes (Death)
  Sender: FDA-Public Use
  Company Number: FR-AVENTIS-200710403FR

PATIENT
  Age: 16 Year
  Sex: Female

DRUGS (2)
  1. LANTUS [Suspect]
     Route: 058
  2. RAPID ACTING INSULIN [Concomitant]

REACTIONS (2)
  - HYPOGLYCAEMIC COMA [None]
  - OVERDOSE [None]
